FAERS Safety Report 5203774-5 (Version None)
Quarter: 2007Q1

REPORT INFORMATION
  Report Type: 
  Country: None (occurrence: None)
  Receive Date: 20070105
  Receipt Date: 20061222
  Transmission Date: 20070707
  Serious: Yes (Other)
  Sender: FDA-Public Use
  Company Number: 2006SP007607

PATIENT
  Age: 52 Year
  Sex: Male

DRUGS (4)
  1. PEG-INTRON [Suspect]
     Indication: HEPATITIS C
     Dosage: 150 MCG; QW; SC
     Route: 058
     Dates: start: 20060822, end: 20061130
  2. REBETOL [Suspect]
     Indication: HEPATITIS C
     Dosage: 600 MG; BID; PO
     Route: 048
     Dates: start: 20060822, end: 20061130
  3. TRAZODONE HCL [Concomitant]
  4. ZOLOFT [Concomitant]

REACTIONS (5)
  - BRADYPHRENIA [None]
  - COGNITIVE DISORDER [None]
  - GASTROINTESTINAL INFECTION [None]
  - HALLUCINATION, AUDITORY [None]
  - SCHIZOPHRENIA [None]
